FAERS Safety Report 4511299-5 (Version None)
Quarter: 2004Q4

REPORT INFORMATION
  Report Type: 
  Country: None (occurrence: None)
  Receive Date: 20041122
  Receipt Date: 20041109
  Transmission Date: 20050328
  Serious: Yes (Hospitalization, Other)
  Sender: FDA-Public Use
  Company Number: DEU-2004-0000999

PATIENT
  Age: 37 Year
  Sex: Female

DRUGS (2)
  1. MORPHINE SULFATE [Suspect]
     Indication: PAIN
     Dosage: 40 MG, DAILY, ORAL
     Route: 048
  2. ZYTRIM ^MERCKLE^ (AZATHIOPRINE) [Concomitant]

REACTIONS (8)
  - COLONIC STENOSIS [None]
  - CROHN'S DISEASE [None]
  - DISEASE RECURRENCE [None]
  - DRUG ABUSER [None]
  - DRUG DEPENDENCE [None]
  - DRUG SCREEN POSITIVE [None]
  - IRON DEFICIENCY ANAEMIA [None]
  - PANCREATITIS ACUTE [None]
